FAERS Safety Report 9056660 (Version 1)
Quarter: 2013Q1

REPORT INFORMATION
  Report Type: Spontaneous
  Country: BR (occurrence: BR)
  Receive Date: 20130204
  Receipt Date: 20130204
  Transmission Date: 20140127
  Serious: Yes (Other)
  Sender: FDA-Public Use
  Company Number: PHHY2013BR008012

PATIENT
  Sex: Male

DRUGS (7)
  1. AZATHIOPRINE [Suspect]
     Route: 064
  2. CICLOSPORIN [Suspect]
     Route: 064
  3. FERROUS SULFATE [Suspect]
     Route: 064
  4. METHYLDOPA [Suspect]
     Route: 064
  5. HYDROCHLOROTHIAZIDE [Suspect]
     Route: 064
  6. ENALAPRIL [Suspect]
     Route: 064
  7. LEVOTHYROXINE [Suspect]
     Route: 064

REACTIONS (5)
  - Premature baby [Unknown]
  - Low birth weight baby [Unknown]
  - Foetal exposure during pregnancy [Unknown]
  - Foetal growth restriction [None]
  - Maternal drugs affecting foetus [None]
